FAERS Safety Report 6039700-9 (Version None)
Quarter: 2009Q1

REPORT INFORMATION
  Report Type: 
  Country: None (occurrence: None)
  Receive Date: 20090116
  Receipt Date: 20081112
  Transmission Date: 20090719
  Serious: Yes (Hospitalization)
  Sender: FDA-Public Use
  Company Number: US-KINGPHARMUSA00001-K200801306

PATIENT
  Age: 47 Year
  Sex: Male

DRUGS (2)
  1. CORGARD [Suspect]
  2. PRINIVIL [Suspect]
     Route: 048

REACTIONS (2)
  - BRADYCARDIA [None]
  - HYPOTENSION [None]
